FAERS Safety Report 9855490 (Version 3)
Quarter: 2014Q1

REPORT INFORMATION
  Report Type: Report from Study
  Country: US (occurrence: US)
  Receive Date: 20140130
  Receipt Date: 20140206
  Transmission Date: 20141002
  Serious: Yes (Death, Hospitalization, Other)
  Sender: FDA-Public Use
  Company Number: US-ASTELLAS-2014US000129

PATIENT
  Age: 61 Year
  Sex: Male
  Weight: 107 kg

DRUGS (33)
  1. ERLOTINIB TABLET [Suspect]
     Indication: ACUTE MYELOID LEUKAEMIA
     Dosage: 150 MG, UNKNOWN/D
     Route: 048
     Dates: end: 20140108
  2. ERLOTINIB TABLET [Suspect]
     Dosage: 150 MG, UID/QD CYCLE 4
     Route: 048
     Dates: start: 20131114, end: 20131213
  3. TACROLIMUS SYSTEMIC [Concomitant]
     Indication: PRODUCT USED FOR UNKNOWN INDICATION
     Dosage: 3 MG, BID
     Route: 048
  4. PEPCID                             /00706001/ [Concomitant]
     Indication: PRODUCT USED FOR UNKNOWN INDICATION
     Dosage: 20 MG, Q12 HOURS
     Route: 065
  5. VALTREX [Concomitant]
     Indication: PRODUCT USED FOR UNKNOWN INDICATION
     Dosage: 500 MG, UID/QD
     Route: 048
  6. INSULIN [Concomitant]
     Indication: DIABETES MELLITUS
     Dosage: SLIDING SCALE, 5 TIMES A DAY
     Route: 065
  7. LEVAQUIN [Concomitant]
     Indication: PRODUCT USED FOR UNKNOWN INDICATION
     Dosage: 500 MG, UID/QD
     Route: 048
  8. AMLODIPINE [Concomitant]
     Indication: BLOOD PRESSURE
     Dosage: 10 MG, UID/QD
     Route: 048
  9. PREDNISONE [Concomitant]
     Indication: GRAFT VERSUS HOST DISEASE
     Dosage: UNK
     Route: 065
  10. MAGNESIUM OXIDE [Concomitant]
     Indication: MINERAL SUPPLEMENTATION
     Dosage: 2 DF, TID, TAKE WITH FOOD
     Route: 048
  11. TRICOR                             /00499301/ [Concomitant]
     Indication: BLOOD CHOLESTEROL
     Dosage: 1 DF, UID/QD, AT BEDTIME
     Route: 048
  12. VIT D3 [Concomitant]
     Indication: SUPPLEMENTATION THERAPY
     Dosage: 1 DF, UID/QD
     Route: 048
  13. CALCIUM CARBONATE [Concomitant]
     Indication: MINERAL SUPPLEMENTATION
     Dosage: 1 DF, BID
     Route: 048
  14. MULTI-VIT [Concomitant]
     Indication: PRODUCT USED FOR UNKNOWN INDICATION
     Dosage: 1 DF, UID/QD
     Route: 048
  15. PANTOPRAZOLE [Concomitant]
     Indication: PRODUCT USED FOR UNKNOWN INDICATION
     Dosage: 40 MG, UID/QD
     Route: 048
  16. LANTUS [Concomitant]
     Indication: DIABETES MELLITUS
     Dosage: 10 U, UID/QD, EVERY NIGHT
     Route: 058
  17. LANTUS [Concomitant]
     Dosage: 25 U, BID
     Route: 058
  18. NOVOLOG [Concomitant]
     Indication: DIABETES MELLITUS
     Dosage: 5-20 UNIT
     Route: 058
  19. NOVOLOG [Concomitant]
     Dosage: 33-51 UNIT
     Route: 058
  20. LASIX                              /00032601/ [Concomitant]
     Indication: PRODUCT USED FOR UNKNOWN INDICATION
     Dosage: 1 DF, UID/QD
     Route: 048
  21. LOVENOX [Concomitant]
     Indication: THROMBOSIS
     Dosage: 100 MG, UID/QD
     Route: 058
  22. POTASSIUM [Concomitant]
     Indication: PRODUCT USED FOR UNKNOWN INDICATION
     Dosage: 2 DF, BID
     Route: 048
  23. NASONEX [Concomitant]
     Indication: PRODUCT USED FOR UNKNOWN INDICATION
     Dosage: UNK, AT BEDTIME
     Route: 045
  24. MEPRON [Concomitant]
     Indication: ANTIFUNGAL PROPHYLAXIS
     Dosage: 10 ML, UID/QD
     Route: 048
  25. BACTROBAN                          /00753901/ [Concomitant]
     Indication: SKIN INFECTION
     Dosage: UNK
     Route: 061
  26. ALLOPURINOL [Concomitant]
     Indication: PRODUCT USED FOR UNKNOWN INDICATION
     Dosage: 2 DF, UID/QD
     Route: 048
  27. ULTRAM [Concomitant]
     Indication: PAIN
     Dosage: UNK
     Route: 048
  28. HYDROCORTI.SUC.AVE [Concomitant]
     Indication: RASH
     Dosage: UNK
     Route: 061
  29. IMODIUM [Concomitant]
     Indication: DIARRHOEA
     Dosage: 1-2 CAPSULES
     Route: 048
  30. AMBIEN [Concomitant]
     Indication: SLEEP DISORDER
     Dosage: 1 OR 2 TABLET AT BEDTIME
     Route: 048
  31. ZOFRAN                             /00955301/ [Concomitant]
     Indication: NAUSEA
     Dosage: 1 DF, Q8 HOURS, AS NEEDED
     Route: 048
  32. ZOFRAN                             /00955301/ [Concomitant]
     Indication: VOMITING
  33. TRAMADOL HCL [Concomitant]
     Indication: PRODUCT USED FOR UNKNOWN INDICATION
     Dosage: 1 DF, PRN
     Route: 048

REACTIONS (19)
  - Off label use [Unknown]
  - Multi-organ failure [Fatal]
  - Hypercoagulation [Unknown]
  - Generalised oedema [Unknown]
  - Blood lactic acid increased [Unknown]
  - Fall [Unknown]
  - Respiratory failure [Unknown]
  - Pleural effusion [Unknown]
  - Pneumonia [Unknown]
  - Renal failure acute [Unknown]
  - Malignant neoplasm progression [Unknown]
  - Bacterial infection [Unknown]
  - Fungal infection [Unknown]
  - Staphylococcal infection [Unknown]
  - Pain in extremity [Unknown]
  - Joint injury [Unknown]
  - Gout [Unknown]
  - Deep vein thrombosis [Unknown]
  - Sepsis [Fatal]
